FAERS Safety Report 20744174 (Version 1)
Quarter: 2022Q2

REPORT INFORMATION
  Report Type: Spontaneous
  Country: US (occurrence: US)
  Receive Date: 20220425
  Receipt Date: 20220425
  Transmission Date: 20220720
  Serious: No
  Sender: FDA-Public Use
  Company Number: US-ASPEN-GLO2022US001758

PATIENT

DRUGS (8)
  1. BENZTROPINE MESYLATE [Suspect]
     Active Substance: BENZTROPINE MESYLATE
     Indication: Dystonia
     Dosage: 0.5 MG, QD
     Route: 065
  2. BENZTROPINE MESYLATE [Suspect]
     Active Substance: BENZTROPINE MESYLATE
     Dosage: 1 MG, BID
     Route: 065
  3. BENZTROPINE MESYLATE [Suspect]
     Active Substance: BENZTROPINE MESYLATE
     Dosage: 1 MG
     Route: 048
  4. CINACALCET [Concomitant]
     Active Substance: CINACALCET
     Indication: Blood calcium increased
     Dosage: 30 MG, 3 DOSE WEEKLY
     Route: 048
  5. CINACALCET [Concomitant]
     Active Substance: CINACALCET
     Dosage: 30 MG, QD
     Route: 048
  6. CLOZAPINE [Concomitant]
     Active Substance: CLOZAPINE
     Indication: Schizophrenia
     Dosage: UNK
     Route: 065
  7. CLOZAPINE [Concomitant]
     Active Substance: CLOZAPINE
     Dosage: 400 MG, QD (150 MG MORNING, 250 MG NIGHT)
     Route: 065
  8. CLOZAPINE [Concomitant]
     Active Substance: CLOZAPINE
     Dosage: 400 MG, QD (125MG MORNING, 250 MG NIGHT)
     Route: 065

REACTIONS (1)
  - Dizziness [Unknown]
